FAERS Safety Report 25662515 (Version 2)
Quarter: 2025Q3

REPORT INFORMATION
  Report Type: Spontaneous
  Country: US (occurrence: US)
  Receive Date: 20250810
  Receipt Date: 20250828
  Transmission Date: 20251020
  Serious: No
  Sender: BAUSCH AND LOMB
  Company Number: US-BAUSCHBL-2025BNL013764

PATIENT
  Age: 82 Year
  Sex: Male

DRUGS (1)
  1. ERYTHROMYCIN [Suspect]
     Active Substance: ERYTHROMYCIN
     Indication: Hordeolum
     Dosage: APPLY A SMALL AMOUNT TWICE DAILY FOR 7 DAYS
     Route: 047
     Dates: start: 20250804

REACTIONS (3)
  - Vision blurred [Recovered/Resolved]
  - Circumstance or information capable of leading to medication error [Unknown]
  - Product container seal issue [Unknown]
